FAERS Safety Report 7296845-3 (Version None)
Quarter: 2011Q1

REPORT INFORMATION
  Report Type: 
  Country: None (occurrence: None)
  Receive Date: 20110216
  Receipt Date: 20110215
  Transmission Date: 20110831
  Serious: Yes (Hospitalization, Other)
  Sender: FDA-Public Use
  Company Number: FR-ABBOTT-00H-056-0097580-00

PATIENT
  Sex: Female

DRUGS (7)
  1. AMOXICILLIN [Concomitant]
     Indication: INFECTION PROPHYLAXIS
     Dates: start: 20000725, end: 20000728
  2. ACETAMINOPHEN [Concomitant]
     Indication: PRODUCT USED FOR UNKNOWN INDICATION
  3. ISOFLURANE, USP [Suspect]
     Indication: GENERAL ANAESTHESIA
     Dates: start: 20000725, end: 20000725
  4. LEVONORGESTREL [Concomitant]
     Indication: PRODUCT USED FOR UNKNOWN INDICATION
  5. PROPOFOL [Concomitant]
     Indication: ANAESTHESIA
     Dates: start: 20000725, end: 20000725
  6. FENTANYL [Concomitant]
     Indication: ANAESTHESIA
     Dates: start: 20000725, end: 20000725
  7. HYPONOVEL [Concomitant]
     Indication: GENERAL ANAESTHESIA
     Dates: start: 20000725

REACTIONS (6)
  - HEPATITIS [None]
  - PRURITUS [None]
  - VOMITING [None]
  - HEPATITIS FULMINANT [None]
  - ABDOMINAL PAIN [None]
  - NAUSEA [None]
